FAERS Safety Report 4432784-0 (Version None)
Quarter: 2004Q3

REPORT INFORMATION
  Report Type: 
  Country: None (occurrence: None)
  Receive Date: 20040823
  Receipt Date: 20040810
  Transmission Date: 20050211
  Serious: Yes (Other)
  Sender: FDA-Public Use
  Company Number: 2004038273

PATIENT
  Age: 17 Year
  Sex: Female

DRUGS (1)
  1. ZYRTEC [Suspect]
     Indication: PRURITUS
     Dosage: ORAL
     Route: 048

REACTIONS (1)
  - LUPUS-LIKE SYNDROME [None]
